FAERS Safety Report 11579542 (Version 2)
Quarter: 2015Q4

REPORT INFORMATION
  Report Type: Spontaneous
  Country: US (occurrence: US)
  Receive Date: 20150930
  Receipt Date: 20151015
  Transmission Date: 20160304
  Serious: No
  Sender: FDA-Public Use
  Company Number: ALCN2015US005942

PATIENT
  Age: 8 Month
  Sex: Female
  Weight: 9.7 kg

DRUGS (2)
  1. MOXEZA [Suspect]
     Active Substance: MOXIFLOXACIN HYDROCHLORIDE
     Indication: CONJUNCTIVITIS BACTERIAL
     Dosage: 1 GTT, UNK
     Route: 047
     Dates: start: 20150914, end: 20150918
  2. CEFDINIR. [Concomitant]
     Active Substance: CEFDINIR
     Indication: OTITIS MEDIA
     Dosage: .5 TSP, BID
     Route: 048
     Dates: start: 20150914

REACTIONS (3)
  - Conjunctival hyperaemia [Recovered/Resolved]
  - Condition aggravated [Recovered/Resolved]
  - Conjunctival oedema [Recovered/Resolved]

NARRATIVE: CASE EVENT DATE: 20150916
